FAERS Safety Report 8876790 (Version 1)
Quarter: 2012Q4

REPORT INFORMATION
  Report Type: 
  Country: US (occurrence: US)
  Receive Date: 20121023
  Receipt Date: 20121023
  Transmission Date: 20130627
  Serious: No
  Sender: FDA-Public Use
  Company Number: US-AMGEN-USASP2012052011

PATIENT
  Age: 24 Year
  Sex: Female

DRUGS (3)
  1. ENBREL [Suspect]
     Indication: PSORIATIC ARTHROPATHY
     Dosage: 50 mg, qwk
     Dates: start: 2004
  2. ENBREL [Suspect]
     Indication: PSORIASIS
  3. REMICADE [Concomitant]
     Dosage: UNK

REACTIONS (6)
  - Contusion [Recovered/Resolved]
  - White blood cell count abnormal [Recovered/Resolved]
  - Movement disorder [Not Recovered/Not Resolved]
  - Pustular psoriasis [Recovered/Resolved]
  - Injection site pain [Not Recovered/Not Resolved]
  - Drug ineffective [Not Recovered/Not Resolved]
